FAERS Safety Report 12861652 (Version 2)
Quarter: 2016Q4

REPORT INFORMATION
  Report Type: Spontaneous
  Country: US (occurrence: US)
  Receive Date: 20161019
  Receipt Date: 20161110
  Transmission Date: 20170207
  Serious: No
  Sender: FDA-Public Use
  Company Number: US-PFIZER INC-2015186778

PATIENT
  Age: 74 Year
  Sex: Male

DRUGS (23)
  1. LYRICA [Suspect]
     Active Substance: PREGABALIN
     Dosage: 75 MG, 2X/DAY
     Route: 048
     Dates: start: 20140730
  2. LYRICA [Suspect]
     Active Substance: PREGABALIN
     Dosage: 100 MG, 2X/DAY
     Route: 048
  3. VITAMIN D3 [Concomitant]
     Active Substance: CHOLECALCIFEROL
     Dosage: 1000 IU, 1X/DAY
     Route: 048
     Dates: start: 20140721
  4. FUROSEMIDE. [Concomitant]
     Active Substance: FUROSEMIDE
     Indication: FLUID RETENTION
     Dosage: 80 MG, 1X/DAY
     Route: 048
  5. GABAPENTIN. [Concomitant]
     Active Substance: GABAPENTIN
     Dosage: 300 MG, 1X/DAY (AT BEDTIME)
     Route: 048
     Dates: start: 20140905
  6. TRIAZOLAM. [Concomitant]
     Active Substance: TRIAZOLAM
     Indication: SLEEP DISORDER
     Dosage: 0.25 MG, AS NEEDED (1 TABLET AT BEDTIME ONCE A DAY)
     Route: 048
     Dates: start: 20150317
  7. PREDNISONE. [Concomitant]
     Active Substance: PREDNISONE
     Indication: CHRONIC OBSTRUCTIVE PULMONARY DISEASE
     Dosage: 5 MG, 2X/DAY (1 TABLET WITH FOOD OR MILK )
     Route: 048
  8. COUMADIN [Concomitant]
     Active Substance: WARFARIN SODIUM
     Dosage: 4 MG, 1X/DAY
     Route: 048
  9. COLCHICINE. [Concomitant]
     Active Substance: COLCHICINE
     Dosage: 0.6 MG, 1X/DAY
     Route: 048
     Dates: start: 20150310
  10. SOMA [Concomitant]
     Active Substance: CARISOPRODOL
     Dosage: 350 MG, AS NEEDED [TWO TIMES A DAY]
     Route: 048
  11. VITAMIN C [Concomitant]
     Active Substance: ASCORBIC ACID
     Dosage: 100 MG, 1X/DAY
     Route: 048
  12. ALBUTEROL SULFATE. [Concomitant]
     Active Substance: ALBUTEROL SULFATE
     Dosage: (2.5 MG/3 ML) 0.083 % 3 ML THREE TIMES A DAY
     Route: 055
  13. SIMVASTATIN. [Concomitant]
     Active Substance: SIMVASTATIN
     Indication: BLOOD CHOLESTEROL ABNORMAL
     Dosage: 20 MG, 1X/DAY (IN THE EVENING)
     Route: 048
  14. PANTOPRAZOLE SODIUM. [Concomitant]
     Active Substance: PANTOPRAZOLE SODIUM
     Dosage: 40 MG, 1X/DAY
     Route: 048
  15. POTASSIUM CHLORIDE. [Concomitant]
     Active Substance: POTASSIUM CHLORIDE
     Indication: BLOOD POTASSIUM ABNORMAL
     Dosage: 40 MEQ, 1X/DAY (20 MEQ, 2 TABLET)
     Route: 048
  16. VITAMIN D3 [Concomitant]
     Active Substance: CHOLECALCIFEROL
     Dosage: 5000 IU, UNK (AS DIRECTED )
     Route: 048
     Dates: start: 20140721
  17. ATENOLOL. [Concomitant]
     Active Substance: ATENOLOL
     Indication: BLOOD PRESSURE ABNORMAL
     Dosage: 50 MG, 1X/DAY
     Route: 048
  18. ALLOPURINOL. [Concomitant]
     Active Substance: ALLOPURINOL
     Indication: GOUT
     Dosage: 300 MG, 1X/DAY
     Route: 048
  19. ALLOPURINOL. [Concomitant]
     Active Substance: ALLOPURINOL
     Dosage: 100 MG, 1X/DAY
     Route: 048
  20. BACTROBAN [Concomitant]
     Active Substance: MUPIROCIN\MUPIROCIN CALCIUM
     Dosage: UNK, 2X/DAY  (1 APPLICATION TO AFFECTED AREA EXTERNALLY)
     Route: 061
     Dates: start: 20150422
  21. METOLAZONE. [Concomitant]
     Active Substance: METOLAZONE
     Dosage: 2.5 MG, UNK (3 TIMES A WEEK)
     Route: 048
  22. ALLOPURINOL. [Concomitant]
     Active Substance: ALLOPURINOL
     Dosage: 200 MG, 1X/DAY
     Route: 048
  23. VITAMIN B12 [Concomitant]
     Active Substance: CYANOCOBALAMIN
     Dosage: 100 UG, UNK (AS DIRECTED )
     Route: 048
     Dates: start: 20140721

REACTIONS (3)
  - Pain [Unknown]
  - Insomnia [Unknown]
  - Condition aggravated [Unknown]
